FAERS Safety Report 15185990 (Version 1)
Quarter: 2018Q3

REPORT INFORMATION
  Report Type: Report from Study
  Country: US (occurrence: US)
  Receive Date: 20180723
  Receipt Date: 20180723
  Transmission Date: 20181010
  Serious: No
  Sender: FDA-Public Use
  Company Number: US-EXELIXIS-CABO-18011946

PATIENT
  Age: 56 Year
  Sex: Male

DRUGS (18)
  1. CHLORTHALIDON [Concomitant]
  2. VERAPAMIL [Concomitant]
     Active Substance: VERAPAMIL HYDROCHLORIDE
  3. MAGNESIUM [Concomitant]
     Active Substance: MAGNESIUM
  4. ZYRTEC [Concomitant]
     Active Substance: CETIRIZINE HYDROCHLORIDE
  5. KCL [Concomitant]
     Active Substance: POTASSIUM CHLORIDE
  6. TURMERIC [Concomitant]
     Active Substance: HERBALS\TURMERIC
  7. METHYLFOLATE [Concomitant]
     Active Substance: LEVOMEFOLATE CALCIUM
  8. ALPRAZOLAM. [Concomitant]
     Active Substance: ALPRAZOLAM
  9. IBUPROFEN. [Concomitant]
     Active Substance: IBUPROFEN
  10. NOVAREL [Concomitant]
     Active Substance: CHORIOGONADOTROPIN ALFA
  11. CABOMETYX [Suspect]
     Active Substance: CABOZANTINIB S-MALATE
     Indication: RENAL NEOPLASM
     Dosage: 40 MG, QD
     Route: 048
     Dates: start: 20171222
  12. VITAMIN D [Concomitant]
     Active Substance: CHOLECALCIFEROL
  13. METOPROLOL. [Concomitant]
     Active Substance: METOPROLOL
  14. LOSARTAN. [Concomitant]
     Active Substance: LOSARTAN
  15. METFORMIN [Concomitant]
     Active Substance: METFORMIN HYDROCHLORIDE
  16. SUCRALFATE. [Concomitant]
     Active Substance: SUCRALFATE
  17. PRAVASTATIN. [Concomitant]
     Active Substance: PRAVASTATIN
  18. GLIMEPIRIDE. [Concomitant]
     Active Substance: GLIMEPIRIDE

REACTIONS (2)
  - Drug dispensing error [Unknown]
  - Diarrhoea [Recovering/Resolving]

NARRATIVE: CASE EVENT DATE: 201712
